FAERS Safety Report 11143027 (Version 1)
Quarter: 2015Q2

REPORT INFORMATION
  Report Type: Spontaneous
  Country: US (occurrence: US)
  Receive Date: 20150528
  Receipt Date: 20150528
  Transmission Date: 20150821
  Serious: Yes (Other)
  Sender: FDA-Public Use
  Company Number: US-UCBSA-2015012835

PATIENT

DRUGS (1)
  1. KEPPRA [Suspect]
     Active Substance: LEVETIRACETAM
     Indication: PRODUCT USED FOR UNKNOWN INDICATION
     Dosage: LOWEST DOSE AT NIGHT

REACTIONS (4)
  - Cyclic vomiting syndrome [Unknown]
  - Haemorrhage [Unknown]
  - Epilepsy [Recovering/Resolving]
  - Weight decreased [Unknown]
